FAERS Safety Report 4932300-0 (Version None)
Quarter: 2006Q1

REPORT INFORMATION
  Report Type: 
  Country: None (occurrence: None)
  Receive Date: 20060228
  Receipt Date: 20060214
  Transmission Date: 20060701
  Serious: Yes (Death, Hospitalization)
  Sender: FDA-Public Use
  Company Number: CLOF-10170

PATIENT
  Age: 4 Year
  Sex: Male

DRUGS (2)
  1. CLOFARABINE [Suspect]
     Indication: ACUTE LYMPHOCYTIC LEUKAEMIA
     Dosage: 28 MG QD X 5 IV
     Route: 042
     Dates: start: 20051122, end: 20051126
  2. CYTARABINE [Concomitant]

REACTIONS (10)
  - APLASIA [None]
  - ASPERGILLOSIS [None]
  - BONE PAIN [None]
  - DISEASE PROGRESSION [None]
  - ESCHERICHIA BACTERAEMIA [None]
  - ESCHERICHIA SEPSIS [None]
  - HEPATOMEGALY [None]
  - HYPOPROTEINAEMIA [None]
  - MUCOSAL INFLAMMATION [None]
  - NEUTROPENIA [None]
